FAERS Safety Report 5101456-1 (Version None)
Quarter: 2006Q3

REPORT INFORMATION
  Report Type: 
  Country: None (occurrence: None)
  Receive Date: 20060906
  Receipt Date: 20060823
  Transmission Date: 20061208
  Serious: Yes (Death, Other)
  Sender: FDA-Public Use
  Company Number: 2006103320

PATIENT
  Age: 86 Year
  Sex: Female

DRUGS (9)
  1. SOLU-MEDROL [Suspect]
     Indication: ACUTE RESPIRATORY DISTRESS SYNDROME
     Dosage: INTRAVENOUS
     Route: 042
  2. ETHANOL (ETHANOL) [Concomitant]
  3. NSAID'S (NSAID'S) [Concomitant]
  4. RED BLOOD CELLS [Concomitant]
  5. CEFPIROME SULFATE (CEFPIROME SULFATE) [Concomitant]
  6. SIVELESTAT (SIVELESTAT) [Concomitant]
  7. ALL OTHER THERAPEUTIC PRODUCTS (ALL OTHER THERAPEUTIC PRODUCTS) [Concomitant]
  8. BLOOD TRANSFUSION, AUXILLARY PRODUCTS (BLOOD TRANSFUSION, AUXILIARY PR [Concomitant]
  9. DIURETICS (DIURETICS) [Concomitant]

REACTIONS (5)
  - ACUTE RESPIRATORY DISTRESS SYNDROME [None]
  - GASTRIC ULCER HAEMORRHAGE [None]
  - HAEMODIALYSIS [None]
  - HYPOVOLAEMIC SHOCK [None]
  - SUTURE RUPTURE [None]
